FAERS Safety Report 11370340 (Version 2)
Quarter: 2015Q3

REPORT INFORMATION
  Report Type: Spontaneous
  Country: BR (occurrence: BR)
  Receive Date: 20150812
  Receipt Date: 20150908
  Transmission Date: 20151125
  Serious: Yes (Other)
  Sender: FDA-Public Use
  Company Number: BR-PFIZER INC-2015261094

PATIENT
  Age: 56 Year
  Sex: Female
  Weight: 70 kg

DRUGS (1)
  1. LIPITOR [Suspect]
     Active Substance: ATORVASTATIN CALCIUM
     Indication: BLOOD CHOLESTEROL ABNORMAL
     Dosage: 10 MG (ONE TABLET), UNK
     Route: 048
     Dates: end: 2014

REACTIONS (3)
  - Breast disorder [Unknown]
  - Weight increased [Unknown]
  - Mitral valve disease [Unknown]

NARRATIVE: CASE EVENT DATE: 20150624
